FAERS Safety Report 8394688-0 (Version None)
Quarter: 2012Q2

REPORT INFORMATION
  Report Type: 
  Country: None (occurrence: None)
  Receive Date: 20120525
  Receipt Date: 20120525
  Transmission Date: 20120825
  Serious: Yes (Other)
  Sender: FDA-Public Use
  Company Number: None

PATIENT
  Age: 56 Year
  Sex: Female
  Weight: 69.8539 kg

DRUGS (1)
  1. LEVOFLOXACIN [Suspect]
     Indication: POST PROCEDURAL INFECTION
     Dosage: ONE TABLET ONCE DAILY
     Dates: start: 20120516, end: 20120523

REACTIONS (11)
  - PAIN IN EXTREMITY [None]
  - FEELING HOT [None]
  - DYSPNOEA [None]
  - DRUG DISPENSING ERROR [None]
  - MUSCLE TIGHTNESS [None]
  - POOR QUALITY SLEEP [None]
  - THROAT TIGHTNESS [None]
  - NAUSEA [None]
  - TENDON PAIN [None]
  - ANGER [None]
  - MYALGIA [None]
